FAERS Safety Report 21592585 (Version 1)
Quarter: 2022Q4

REPORT INFORMATION
  Report Type: Spontaneous
  Country: US (occurrence: None)
  Receive Date: 20221112
  Receipt Date: 20221112
  Transmission Date: 20230112
  Serious: Yes (Other)
  Sender: FDA-Public Use
  Company Number: None

PATIENT
  Age: 62 Year
  Sex: Male

DRUGS (1)
  1. HUMIRA [Suspect]
     Active Substance: ADALIMUMAB
     Indication: Spinal osteoarthritis
     Dosage: 40 MG/0.4ML??INJECT 1 PEN ( 0.4ML) UNDER THE SKIN (SUBCUTANEOUS INJECTION) EVERY 14 DAYS? ?
     Route: 058
     Dates: start: 20210311

REACTIONS (4)
  - Infection [None]
  - Surgery [None]
  - Therapy interrupted [None]
  - Joint stiffness [None]

NARRATIVE: CASE EVENT DATE: 20221015
